FAERS Safety Report 12638643 (Version 4)
Quarter: 2018Q1

REPORT INFORMATION
  Report Type: Spontaneous
  Country: US (occurrence: US)
  Receive Date: 20160809
  Receipt Date: 20180312
  Transmission Date: 20180508
  Serious: Yes (Hospitalization)
  Sender: FDA-Public Use
  Company Number: US-ENDO PHARMACEUTICALS INC.-2016-004964

PATIENT
  Age: 53 Year
  Sex: Male
  Weight: 136.5 kg

DRUGS (3)
  1. TESTIM [Suspect]
     Active Substance: TESTOSTERONE
     Indication: ANDROGEN REPLACEMENT THERAPY
     Dosage: UNK UNKNOWN, DAILY
     Route: 065
     Dates: start: 2011, end: 2013
  2. TESTIM [Suspect]
     Active Substance: TESTOSTERONE
     Dosage: UNK UNKNOWN, UNKNOWN
     Route: 065
     Dates: start: 20130524, end: 20140926
  3. ANDROGEL [Suspect]
     Active Substance: TESTOSTERONE
     Indication: ANDROGEN REPLACEMENT THERAPY
     Dosage: UNK UNKNOWN, DAILY
     Route: 065
     Dates: start: 20121105, end: 20130331

REACTIONS (1)
  - Myocardial infarction [Unknown]

NARRATIVE: CASE EVENT DATE: 20130816
